FAERS Safety Report 8017515-X (Version None)
Quarter: 2011Q4

REPORT INFORMATION
  Report Type: 
  Country: None (occurrence: None)
  Receive Date: 20111228
  Receipt Date: 20111228
  Transmission Date: 20120403
  Serious: Yes (Disabling, Congenital Anomaly)
  Sender: FDA-Public Use
  Company Number: None

PATIENT
  Sex: Male
  Weight: 3.7422 kg

DRUGS (1)
  1. ORTHO-NOVUM 1/35 [Suspect]
     Indication: CONTRACEPTION
     Dosage: 1/35 TABLES 1 A DAY MORNING
     Dates: start: 20110117

REACTIONS (3)
  - UNEVALUABLE EVENT [None]
  - CLEFT LIP AND PALATE [None]
  - MATERNAL DRUGS AFFECTING FOETUS [None]
